FAERS Safety Report 10479045 (Version 1)
Quarter: 2014Q3

REPORT INFORMATION
  Report Type: Spontaneous
  Country: VE (occurrence: VE)
  Receive Date: 20140926
  Receipt Date: 20140926
  Transmission Date: 20150326
  Serious: Yes (Other)
  Sender: FDA-Public Use
  Company Number: PHHY2014VE123490

PATIENT
  Age: 73 Year
  Sex: Male

DRUGS (5)
  1. FORADIL [Suspect]
     Active Substance: FORMOTEROL FUMARATE
     Indication: FATIGUE
     Dosage: 24 UG, DAILY
     Route: 055
     Dates: start: 201312
  2. ILTUX [Concomitant]
     Indication: BLOOD PRESSURE ABNORMAL
     Dosage: 20 MG, QD (EVERY NIGHT AT 9 PM)
  3. ONBREZ [Suspect]
     Active Substance: INDACATEROL
     Indication: FATIGUE
     Dosage: UKN
  4. ALDACTONE [Concomitant]
     Active Substance: SPIRONOLACTONE
     Indication: OEDEMA PERIPHERAL
     Dosage: 50 MG, DAILY (AFTER BREAKFAST)
  5. ONBREZ [Suspect]
     Active Substance: INDACATEROL
     Indication: DYSPNOEA
     Dosage: 600 MG, DAILY
     Route: 055
     Dates: start: 201312

REACTIONS (3)
  - Dyspnoea [Unknown]
  - Chronic obstructive pulmonary disease [Unknown]
  - Malaise [Unknown]

NARRATIVE: CASE EVENT DATE: 20140918
